FAERS Safety Report 23232018 (Version 1)
Quarter: 2023Q4

REPORT INFORMATION
  Report Type: Spontaneous
  Country: BR (occurrence: BR)
  Receive Date: 20231127
  Receipt Date: 20231127
  Transmission Date: 20240109
  Serious: Yes (Hospitalization, Other)
  Sender: FDA-Public Use
  Company Number: BR-ELI_LILLY_AND_COMPANY-BR202311012564

PATIENT
  Age: 57 Year
  Sex: Female

DRUGS (2)
  1. SELPERCATINIB [Suspect]
     Active Substance: SELPERCATINIB
     Indication: Non-small cell lung cancer stage IIIA
     Dosage: 160 MG, Q12H
     Route: 065
  2. CAPMATINIB [Suspect]
     Active Substance: CAPMATINIB
     Indication: Non-small cell lung cancer stage IIIA
     Dosage: 400 MG, BID

REACTIONS (5)
  - Adrenal disorder [Unknown]
  - Pneumonitis [Recovered/Resolved]
  - Malignant neoplasm progression [Recovered/Resolved]
  - Diarrhoea [Recovered/Resolved]
  - Oedema peripheral [Recovered/Resolved]
